FAERS Safety Report 7795214-7 (Version None)
Quarter: 2011Q4

REPORT INFORMATION
  Report Type: 
  Country: None (occurrence: None)
  Receive Date: 20111004
  Receipt Date: 20110926
  Transmission Date: 20120403
  Serious: Yes (Other)
  Sender: FDA-Public Use
  Company Number: US-AMGEN-USASP2011049577

PATIENT
  Age: 66 Year
  Sex: Female

DRUGS (1)
  1. ENBREL [Suspect]
     Indication: RHEUMATOID ARTHRITIS
     Dosage: 50 MG, QWK
     Dates: start: 20000901

REACTIONS (12)
  - CUSHINGOID [None]
  - INTERVERTEBRAL DISC PROTRUSION [None]
  - INCREASED APPETITE [None]
  - INJECTION SITE PAIN [None]
  - SKIN ATROPHY [None]
  - RHEUMATOID ARTHRITIS [None]
  - INJECTION SITE PRURITUS [None]
  - WEIGHT LOSS POOR [None]
  - LACERATION [None]
  - INJECTION SITE HAEMATOMA [None]
  - INJECTION SITE HAEMORRHAGE [None]
  - CONTUSION [None]
